FAERS Safety Report 18410286 (Version 1)
Quarter: 2020Q4

REPORT INFORMATION
  Report Type: Spontaneous
  Country: US (occurrence: US)
  Receive Date: 20201021
  Receipt Date: 20201021
  Transmission Date: 20210114
  Serious: Yes (Disabling)
  Sender: FDA-Public Use
  Company Number: None

PATIENT
  Age: 61 Year
  Sex: Female
  Weight: 112.5 kg

DRUGS (1)
  1. METHOTREXATE 2.5MG TABS [Suspect]
     Active Substance: METHOTREXATE
     Indication: PSORIASIS
     Dosage: ?          QUANTITY:1 TABLET(S);OTHER FREQUENCY:6 TABLETS WEEKLY;?
     Route: 048
     Dates: start: 20200805, end: 20201019

REACTIONS (2)
  - Movement disorder [None]
  - Syncope [None]

NARRATIVE: CASE EVENT DATE: 20201018
